FAERS Safety Report 7077152-0 (Version None)
Quarter: 2010Q4

REPORT INFORMATION
  Report Type: 
  Country: None (occurrence: None)
  Receive Date: 20101101
  Receipt Date: 20101025
  Transmission Date: 20110411
  Serious: Yes (Hospitalization)
  Sender: FDA-Public Use
  Company Number: A0889583A

PATIENT
  Sex: Female
  Weight: 13 kg

DRUGS (3)
  1. CEFUROXIME [Suspect]
     Indication: PNEUMONIA
     Dosage: 250MG TWICE PER DAY
     Route: 048
     Dates: start: 20101004, end: 20101015
  2. AEROLIN [Concomitant]
     Dosage: 1PUFF THREE TIMES PER DAY
     Route: 055
     Dates: start: 20090901
  3. SERETIDE [Concomitant]
     Dosage: 2PUFF TWICE PER DAY
     Route: 055
     Dates: start: 20101004

REACTIONS (4)
  - DRUG INEFFECTIVE [None]
  - PNEUMONIA [None]
  - PRODUCT QUALITY ISSUE [None]
  - RESPIRATORY ARREST [None]
